FAERS Safety Report 11965554 (Version 2)
Quarter: 2017Q4

REPORT INFORMATION
  Report Type: Spontaneous
  Country: BR (occurrence: BR)
  Receive Date: 20160127
  Receipt Date: 20171215
  Transmission Date: 20180320
  Serious: Yes (Other)
  Sender: FDA-Public Use
  Company Number: BR-PFIZER INC-2015425987

PATIENT
  Age: 83 Year
  Sex: Male
  Weight: 53 kg

DRUGS (6)
  1. XALATAN [Suspect]
     Active Substance: LATANOPROST
     Indication: INTRAOCULAR PRESSURE TEST ABNORMAL
     Dosage: 2 GTT (ONE DROP IN EACH EYE), DAILY
     Route: 047
     Dates: start: 2008, end: 20151202
  2. RISEDROSS [Concomitant]
     Active Substance: RISEDRONATE SODIUM
     Indication: RHEUMATIC DISORDER
     Dosage: 35 MG, UNK
     Dates: start: 2015
  3. VITAMIN D /00107901/ [Concomitant]
     Active Substance: ERGOCALCIFEROL
     Dosage: UNK
  4. PREDSIM [Concomitant]
     Active Substance: PREDNISOLONE
     Indication: ARTHRITIS
     Dosage: 5 MG, UNK
     Dates: start: 2011
  5. AIDE 3 [Concomitant]
     Indication: RHEUMATIC DISORDER
     Dosage: UNK
     Dates: start: 2015
  6. FRESH TEARS /00007002/ [Concomitant]
     Dosage: UNK, 2X/DAY

REACTIONS (4)
  - Condition aggravated [Not Recovered/Not Resolved]
  - Cataract [Not Recovered/Not Resolved]
  - Drug ineffective [Recovered/Resolved]
  - Rheumatoid arthritis [Not Recovered/Not Resolved]

NARRATIVE: CASE EVENT DATE: 2010
